FAERS Safety Report 21001811 (Version 1)
Quarter: 2022Q2

REPORT INFORMATION
  Report Type: Spontaneous
  Country: JP (occurrence: JP)
  Receive Date: 20220624
  Receipt Date: 20220624
  Transmission Date: 20220721
  Serious: Yes (Death, Other)
  Sender: FDA-Public Use
  Company Number: JP-MSD-M2022-24488

PATIENT
  Age: 8 Decade
  Sex: Male

DRUGS (3)
  1. KEYTRUDA [Suspect]
     Active Substance: PEMBROLIZUMAB
     Indication: Neoplasm malignant
     Dosage: 200 MILLIGRAM, Q3W
     Route: 041
     Dates: start: 202202, end: 202204
  2. ALIMTA [Concomitant]
     Active Substance: PEMETREXED DISODIUM
     Dosage: UNK
     Route: 042
     Dates: start: 202202, end: 202204
  3. CARBOPLATIN [Concomitant]
     Active Substance: CARBOPLATIN
     Dosage: UNK
     Route: 042
     Dates: start: 202202, end: 202204

REACTIONS (2)
  - Immune-mediated hepatic disorder [Fatal]
  - Constipation [Unknown]

NARRATIVE: CASE EVENT DATE: 20220101
